FAERS Safety Report 19046033 (Version 1)
Quarter: 2021Q1

REPORT INFORMATION
  Report Type: Spontaneous
  Country: CN (occurrence: CN)
  Receive Date: 20210322
  Receipt Date: 20210322
  Transmission Date: 20210420
  Serious: Yes (Other)
  Sender: FDA-Public Use
  Company Number: CN-ASTRAZENECA-2021A011838

PATIENT
  Age: 67 Year
  Sex: Male
  Weight: 75 kg

DRUGS (4)
  1. IBUPROFEN. [Concomitant]
     Active Substance: IBUPROFEN
     Indication: PYREXIA
     Dates: start: 20210107, end: 20210112
  2. IBUPROFEN. [Concomitant]
     Active Substance: IBUPROFEN
     Indication: PAIN
     Dates: start: 20210107, end: 20210112
  3. TAGRISSO [Suspect]
     Active Substance: OSIMERTINIB
     Indication: NON-SMALL CELL LUNG CANCER STAGE III
     Dosage: DOSE UNKNOWN
     Route: 048
     Dates: start: 20201226, end: 20210112
  4. TAGRISSO [Suspect]
     Active Substance: OSIMERTINIB
     Indication: EGFR GENE MUTATION
     Dosage: DOSE UNKNOWN
     Route: 048
     Dates: start: 20201226, end: 20210112

REACTIONS (6)
  - Myelosuppression [Unknown]
  - Blood bilirubin abnormal [Recovering/Resolving]
  - Cardiac failure acute [Recovering/Resolving]
  - Hepatic function abnormal [Recovering/Resolving]
  - Pneumonia [Unknown]
  - Hypokalaemia [Unknown]
